FAERS Safety Report 6065250-X (Version None)
Quarter: 2009Q1

REPORT INFORMATION
  Report Type: 
  Country: None (occurrence: None)
  Receive Date: 20090130
  Receipt Date: 20090120
  Transmission Date: 20090719
  Serious: Yes (Other)
  Sender: FDA-Public Use
  Company Number: GXKR2009PK01005

PATIENT
  Age: 20 Year
  Sex: Male

DRUGS (7)
  1. VINCRISTINE [Suspect]
     Indication: T-CELL LYMPHOMA
  2. DOXORUBICIN HCL [Suspect]
     Indication: T-CELL LYMPHOMA
  3. DEXAMETHASONE [Suspect]
     Indication: T-CELL LYMPHOMA
  4. METHOTREXATE [Suspect]
     Indication: T-CELL LYMPHOMA
  5. CYTARABINE [Suspect]
     Indication: T-CELL LYMPHOMA
  6. CYCLOPHOSPHAMIDE [Suspect]
     Indication: T-CELL LYMPHOMA
  7. GRANULOCYTE COLONY STIMULATING FACTOR (GRANULCYTE COLONY STIMULATING F [Concomitant]

REACTIONS (7)
  - ABDOMINAL PAIN UPPER [None]
  - EXTRAMEDULLARY HAEMOPOIESIS [None]
  - NEUTROPENIA [None]
  - PERITONEAL HAEMORRHAGE [None]
  - SPLEEN CONGESTION [None]
  - SPLENIC RUPTURE [None]
  - SPLENOMEGALY [None]
